FAERS Safety Report 4864020-5 (Version None)
Quarter: 2005Q4

REPORT INFORMATION
  Report Type: 
  Country: None (occurrence: None)
  Receive Date: 20051222
  Receipt Date: 20051219
  Transmission Date: 20060501
  Serious: Yes (Death, Hospitalization)
  Sender: FDA-Public Use
  Company Number: SG-BRISTOL-MYERS SQUIBB COMPANY-13222401

PATIENT
  Age: 87 Year
  Sex: Male
  Weight: 69 kg

DRUGS (16)
  1. CARBOPLATIN [Suspect]
     Indication: NON-SMALL CELL LUNG CANCER
     Route: 042
     Dates: start: 20051105, end: 20051105
  2. PACLITAXEL [Suspect]
     Indication: NON-SMALL CELL LUNG CANCER
     Route: 042
     Dates: start: 20051105, end: 20051105
  3. IRINOTECAN HCL [Suspect]
     Indication: NON-SMALL CELL LUNG CANCER
     Route: 042
     Dates: start: 20051105, end: 20051105
  4. DULCOLAX [Concomitant]
     Route: 054
     Dates: start: 20051107, end: 20051107
  5. OMEPRAZOLE [Concomitant]
     Route: 048
     Dates: start: 20051104, end: 20051112
  6. PROCODIN [Concomitant]
     Route: 048
     Dates: start: 20051104
  7. MEGACE [Concomitant]
     Route: 048
     Dates: start: 20051104
  8. CLOPIDOGREL BISULFATE [Concomitant]
     Route: 048
     Dates: start: 20051104
  9. XATRAL [Concomitant]
     Route: 048
     Dates: start: 20051104, end: 20051105
  10. APROVEL [Concomitant]
     Route: 048
     Dates: start: 20051104
  11. AVODART [Concomitant]
     Route: 048
     Dates: start: 20051104
  12. ALFUZOSIN HCL [Concomitant]
     Route: 048
     Dates: start: 20051105, end: 20051106
  13. LACTULOSE [Concomitant]
     Route: 048
     Dates: start: 20051106, end: 20051107
  14. PARIET [Concomitant]
     Route: 048
     Dates: start: 20051112
  15. TRIMETAZIDINE [Concomitant]
     Route: 048
     Dates: start: 20051112
  16. AUGMENTIN [Concomitant]
     Route: 048
     Dates: start: 20051114, end: 20051124

REACTIONS (9)
  - ACUTE RESPIRATORY DISTRESS SYNDROME [None]
  - BRADYCARDIA [None]
  - DEHYDRATION [None]
  - GASTROINTESTINAL HAEMORRHAGE [None]
  - HAEMATEMESIS [None]
  - HYPOTENSION [None]
  - LOWER RESPIRATORY TRACT INFECTION [None]
  - ORAL INTAKE REDUCED [None]
  - SEPTIC SHOCK [None]
